FAERS Safety Report 15833681 (Version 4)
Quarter: 2019Q1

REPORT INFORMATION
  Report Type: Spontaneous
  Country: NL (occurrence: NL)
  Receive Date: 20190116
  Receipt Date: 20190205
  Transmission Date: 20190417
  Serious: Yes (Death, Life-Threatening, Hospitalization, Other)
  Sender: FDA-Public Use
  Company Number: NL-JNJFOC-20190112574

PATIENT
  Age: 35 Year
  Sex: Female

DRUGS (4)
  1. LAMOTRIGINE. [Suspect]
     Active Substance: LAMOTRIGINE
     Indication: BIPOLAR DISORDER
     Route: 065
  2. LAMOTRIGINE. [Suspect]
     Active Substance: LAMOTRIGINE
     Indication: BIPOLAR DISORDER
     Route: 065
  3. ZOPICLONE [Concomitant]
     Active Substance: ZOPICLONE
     Indication: BIPOLAR DISORDER
     Route: 065
  4. XEPLION [Suspect]
     Active Substance: PALIPERIDONE PALMITATE
     Indication: BIPOLAR DISORDER
     Dosage: PROLONGED-RELEASE
     Route: 030

REACTIONS (6)
  - Inappropriate antidiuretic hormone secretion [Fatal]
  - Hyponatraemia [Fatal]
  - Product use in unapproved indication [Unknown]
  - Off label use [Unknown]
  - Coma [Fatal]
  - Seizure [Unknown]
